FAERS Safety Report 9352380 (Version 1)
Quarter: 2013Q2

REPORT INFORMATION
  Report Type: Spontaneous
  Country: ZA (occurrence: ZA)
  Receive Date: 20130617
  Receipt Date: 20130617
  Transmission Date: 20140414
  Serious: Yes (Death)
  Sender: FDA-Public Use
  Company Number: ZA-ELI_LILLY_AND_COMPANY-ZA201306004143

PATIENT
  Sex: 0

DRUGS (3)
  1. CAPREOMYCIN SULFATE [Suspect]
     Indication: TUBERCULOSIS
     Dosage: UNK
  2. ISONICOTINYL HYDRAZINE [Concomitant]
     Dosage: 10 MG/KG, UNK
  3. PARA-AMINOSALICYLIC ACID [Concomitant]

REACTIONS (1)
  - Renal failure [Fatal]
